FAERS Safety Report 10548480 (Version 2)
Quarter: 2014Q4

REPORT INFORMATION
  Report Type: Report from Study
  Country: US (occurrence: US)
  Receive Date: 20141028
  Receipt Date: 20141223
  Transmission Date: 20150529
  Serious: Yes (Death, Hospitalization, Other)
  Sender: FDA-Public Use
  Company Number: US-AMGEN-USASL2014082070

PATIENT
  Age: 92 Year
  Sex: Female
  Weight: 61.8 kg

DRUGS (14)
  1. ASPIRIN                            /00002701/ [Concomitant]
     Active Substance: ASPIRIN
     Dosage: 81 MG, QD
     Route: 048
     Dates: start: 20080109
  2. CALCIUM VITAMIN D [Concomitant]
     Active Substance: CALCIUM\VITAMIN D
     Dosage: 600MG-200IU, QD
     Route: 048
  3. VITAMIN D3 [Concomitant]
     Active Substance: CHOLECALCIFEROL
     Dosage: 2000 IU, QD
     Route: 048
  4. LASIX [Concomitant]
     Active Substance: FUROSEMIDE
     Dosage: 40 MG, QD
     Route: 048
  5. POTASSIUM CHLORIDE. [Concomitant]
     Active Substance: POTASSIUM CHLORIDE
     Dosage: 10 MEQ, BID
     Route: 048
  6. KETOPROFEN. [Concomitant]
     Active Substance: KETOPROFEN
     Dosage: UNK UNK, Q6H
     Dates: start: 20121031
  7. RANITIDINE [Concomitant]
     Active Substance: RANITIDINE\RANITIDINE HYDROCHLORIDE
     Dosage: 150 MG, QHS
  8. VITAMIN B COMPLEX [Concomitant]
     Active Substance: CYANOCOBALAMIN\DEXPANTHENOL\NIACINAMIDE\PYRIDOXINE HYDROCHLORIDE\RIBOFLAVIN 5^-PHOSPHATE SODIUM\THIAMINE HYDROCHLORIDE\VITAMIN B COMPLEX
  9. KLOR-CON [Concomitant]
     Active Substance: POTASSIUM CHLORIDE
     Dosage: 10 MEQ, QD
     Route: 048
     Dates: start: 20130417
  10. PROLIA [Suspect]
     Active Substance: DENOSUMAB
     Indication: OSTEOPOROSIS POSTMENOPAUSAL
     Route: 065
  11. BENZONATATE. [Concomitant]
     Active Substance: BENZONATATE
     Dosage: 200 MG, TID
     Route: 048
     Dates: start: 20130417
  12. LISINOPRIL. [Concomitant]
     Active Substance: LISINOPRIL
     Dosage: 10 MG, QD
     Route: 048
     Dates: start: 20130417
  13. FLUTICASONE [Concomitant]
     Active Substance: FLUTICASONE\FLUTICASONE PROPIONATE
     Dosage: 50MCG/ ACTUATION, 2 SPRAYS EACH NOSTRIL
     Dates: start: 20120323
  14. CIMETIDINE [Concomitant]
     Active Substance: CIMETIDINE
     Dosage: 400 MG, QHS
     Route: 048

REACTIONS (25)
  - Rib fracture [Unknown]
  - Renal cyst [Unknown]
  - Hiatus hernia [Unknown]
  - Headache [Unknown]
  - Skin hyperpigmentation [Unknown]
  - Injury [Fatal]
  - Arteriosclerosis [Unknown]
  - Sinus disorder [Unknown]
  - Upper-airway cough syndrome [Unknown]
  - Respiratory failure [Fatal]
  - Eye haemorrhage [Unknown]
  - Ulna fracture [Unknown]
  - Spinal fracture [Unknown]
  - Laceration [Unknown]
  - Radius fracture [Unknown]
  - Subdural haemorrhage [Unknown]
  - Respiratory distress [Unknown]
  - Thyroid neoplasm [Unknown]
  - Brain contusion [Unknown]
  - Arthritis [Unknown]
  - Pulmonary contusion [Unknown]
  - Fall [Fatal]
  - Spondylolisthesis [Unknown]
  - Subdural haematoma [Fatal]
  - Back pain [Unknown]
